FAERS Safety Report 11165170 (Version 1)
Quarter: 2015Q2

REPORT INFORMATION
  Report Type: Spontaneous
  Country: US (occurrence: None)
  Receive Date: 20150603
  Receipt Date: 20150603
  Transmission Date: 20150821
  Serious: No
  Sender: FDA-Public Use
  Company Number: None

PATIENT
  Age: 68 Day
  Sex: Female
  Weight: 63.5 kg

DRUGS (5)
  1. NEURONTON [Concomitant]
  2. HORMONE REPLACEMENT [Concomitant]
  3. BELSOMRA [Suspect]
     Active Substance: SUVOREXANT
     Indication: CIRCADIAN RHYTHM SLEEP DISORDER
     Dosage: 1 AT BEDTIME TAKEN BY MOUTH
     Route: 048
  4. FISH OIL [Concomitant]
     Active Substance: FISH OIL
  5. BENICAR [Concomitant]
     Active Substance: OLMESARTAN MEDOXOMIL

REACTIONS (3)
  - Negative thoughts [None]
  - Abnormal dreams [None]
  - Fatigue [None]

NARRATIVE: CASE EVENT DATE: 20150528
